FAERS Safety Report 15682780 (Version 1)
Quarter: 2018Q4

REPORT INFORMATION
  Report Type: Spontaneous
  Country: CA (occurrence: CA)
  Receive Date: 20181203
  Receipt Date: 20181203
  Transmission Date: 20190205
  Serious: Yes (Life-Threatening, Other)
  Sender: FDA-Public Use
  Company Number: CA-BAYER-2018-221443

PATIENT
  Sex: Female

DRUGS (2)
  1. TISSUE PLASMINOGEN ACTIVATOR, RECOMBINATIVE [Interacting]
     Active Substance: ALTEPLASE
     Indication: CEREBROVASCULAR ACCIDENT
  2. ACETYLSALICYLIC ACID({=100 MG) [Suspect]
     Active Substance: ASPIRIN
     Indication: CEREBROVASCULAR ACCIDENT
     Dosage: UNK, QD

REACTIONS (2)
  - Angioedema [Recovered/Resolved]
  - Drug interaction [None]
